FAERS Safety Report 18575369 (Version 8)
Quarter: 2021Q4

REPORT INFORMATION
  Report Type: Report from Study
  Country: US (occurrence: US)
  Receive Date: 20201203
  Receipt Date: 20211007
  Transmission Date: 20220303
  Serious: Yes (Disabling, Other)
  Sender: FDA-Public Use
  Company Number: US-NOVARTISPH-NVSC2020US321463

PATIENT
  Age: 44 Year
  Sex: Female

DRUGS (1)
  1. KESIMPTA [Suspect]
     Active Substance: OFATUMUMAB
     Indication: Multiple sclerosis
     Dosage: (BENEATH THE SKIN, USUALLY VIA INJECTION)
     Route: 058
     Dates: start: 20201121

REACTIONS (9)
  - Fall [Unknown]
  - Dysstasia [Unknown]
  - Multiple sclerosis relapse [Unknown]
  - Memory impairment [Unknown]
  - Balance disorder [Unknown]
  - Tremor [Unknown]
  - Muscular weakness [Unknown]
  - Energy increased [Unknown]
  - Chills [Recovered/Resolved]

NARRATIVE: CASE EVENT DATE: 20201221
